FAERS Safety Report 6213913-5 (Version None)
Quarter: 2009Q2

REPORT INFORMATION
  Report Type: 
  Country: None (occurrence: None)
  Receive Date: 20090601
  Receipt Date: 20090601
  Transmission Date: 20091009
  Serious: Yes (Hospitalization)
  Sender: FDA-Public Use
  Company Number: None

PATIENT
  Age: 69 Year
  Sex: Male
  Weight: 84.5 kg

DRUGS (2)
  1. CITALOPRAM HYDROBROMIDE [Suspect]
     Dosage: 40MG DAILY PO
     Route: 048
  2. METOCLOPRAMIDE [Suspect]
     Dosage: 10MG EVERY 8 HOURS PO
     Route: 048

REACTIONS (1)
  - CONFUSIONAL STATE [None]
